FAERS Safety Report 5076478-X (Version None)
Quarter: 2006Q3

REPORT INFORMATION
  Report Type: 
  Country: None (occurrence: None)
  Receive Date: 20060725
  Receipt Date: 20060516
  Transmission Date: 20061208
  Serious: No
  Sender: FDA-Public Use
  Company Number: 200613622BWH

PATIENT
  Age: 74 Year
  Sex: Male

DRUGS (7)
  1. NEXAVAR [Suspect]
     Indication: RENAL CELL CARCINOMA STAGE UNSPECIFIED
     Dosage: SEE IMAGE
     Route: 048
     Dates: start: 20060601, end: 20060623
  2. NEXAVAR [Suspect]
     Indication: RENAL CELL CARCINOMA STAGE UNSPECIFIED
     Dosage: SEE IMAGE
     Route: 048
     Dates: start: 20060417
  3. DIGOXIN [Concomitant]
  4. ZESTRIL [Concomitant]
  5. MEVACOR [Concomitant]
  6. LASIX [Concomitant]
  7. COUMADIN [Concomitant]

REACTIONS (3)
  - DECREASED APPETITE [None]
  - POLLAKIURIA [None]
  - WEIGHT DECREASED [None]
